FAERS Safety Report 15228865 (Version 1)
Quarter: 2018Q3

REPORT INFORMATION
  Report Type: Report from Study
  Country: US (occurrence: US)
  Receive Date: 20180801
  Receipt Date: 20180801
  Transmission Date: 20181010
  Serious: No
  Sender: FDA-Public Use
  Company Number: US-AMGEN-USASL2017163292

PATIENT
  Age: 44 Year
  Sex: Male

DRUGS (1)
  1. NPLATE [Suspect]
     Active Substance: ROMIPLOSTIM
     Indication: IMMUNE THROMBOCYTOPENIC PURPURA
     Dosage: QWK
     Route: 065

REACTIONS (6)
  - Pyrexia [Unknown]
  - Feeling abnormal [Unknown]
  - Tremor [Unknown]
  - Weight decreased [Unknown]
  - Abdominal discomfort [Unknown]
  - Nausea [Recovered/Resolved]
